FAERS Safety Report 16624004 (Version 1)
Quarter: 2019Q3

REPORT INFORMATION
  Report Type: Other
  Country: FR (occurrence: FR)
  Receive Date: 20190724
  Receipt Date: 20190724
  Transmission Date: 20191004
  Serious: Yes (Other)
  Sender: FDA-Public Use
  Company Number: FR-DENTSPLY-2019SCDP000401

PATIENT
  Age: 59 Year
  Sex: Male
  Weight: 63 kg

DRUGS (5)
  1. HEPARINE [HEPARIN] [Suspect]
     Active Substance: HEPARIN SODIUM
     Indication: ANGIOCARDIOGRAM
     Dosage: 4000 INTERNATIONAL UNIT, TOTAL
     Route: 042
     Dates: start: 20190602, end: 20190602
  2. VISIPAQUE [Suspect]
     Active Substance: IODIXANOL
     Indication: ANGIOCARDIOGRAM
     Dosage: 80 MILLILITER, TOTAL
     Route: 042
     Dates: start: 20190602, end: 20190602
  3. RISORDAN [ISOSORBIDE DINITRATE] [Suspect]
     Active Substance: ISOSORBIDE DINITRATE
     Indication: ANGIOCARDIOGRAM
     Dosage: 1 MILLIGRAM, TOTAL
     Route: 013
     Dates: start: 20190602, end: 20190602
  4. XYLOCAINE WITH ADRENALINE (EPINEPHRINE) [Suspect]
     Active Substance: EPINEPHRINE BITARTRATE\LIDOCAINE HYDROCHLORIDE
     Indication: ANGIOCARDIOGRAM
     Dosage: 1 MILLILITER, TOTAL
     Route: 058
     Dates: start: 20190602, end: 20190602
  5. TRIATEC [RAMIPRIL] [Suspect]
     Active Substance: RAMIPRIL
     Indication: HYPERTENSION
     Dosage: 5 MILLIGRAM, TOTAL
     Route: 048
     Dates: start: 20190602, end: 20190602

REACTIONS (1)
  - Rash scarlatiniform [Recovered/Resolved]

NARRATIVE: CASE EVENT DATE: 20190603
